FAERS Safety Report 25689561 (Version 1)
Quarter: 2025Q3

REPORT INFORMATION
  Report Type: Spontaneous
  Country: CN (occurrence: CN)
  Receive Date: 20250818
  Receipt Date: 20250818
  Transmission Date: 20251020
  Serious: Yes (Hospitalization)
  Sender: CHEPLAPHARM
  Company Number: CN-CHEPLA-2025009770

PATIENT
  Age: 12 Year

DRUGS (6)
  1. GANCICLOVIR [Suspect]
     Active Substance: GANCICLOVIR
     Indication: Cytomegalovirus infection
     Dosage: ON DAY 28?DAILY DOSE: 10 MILLIGRAM/KG
  2. GANCICLOVIR [Suspect]
     Active Substance: GANCICLOVIR
     Indication: Cytomegalovirus infection
     Dosage: DAILY DOSE: 5 MILLIGRAM/KG
  3. METHYLPREDNISOLONE [Suspect]
     Active Substance: METHYLPREDNISOLONE
     Indication: Multisystem inflammatory syndrome in children
     Dosage: DAILY DOSE: 80 MILLIGRAM
  4. METHYLPREDNISOLONE [Suspect]
     Active Substance: METHYLPREDNISOLONE
     Indication: Multisystem inflammatory syndrome in children
     Dosage: DAILY DOSE: 60 MILLIGRAM
  5. METHYLPREDNISOLONE [Suspect]
     Active Substance: METHYLPREDNISOLONE
     Indication: Multisystem inflammatory syndrome in children
     Dosage: REDUCED?DAILY DOSE: 20 MILLIGRAM
  6. IMMUNOGLOBULIN [Concomitant]
     Indication: Multisystem inflammatory syndrome in children
     Route: 042

REACTIONS (3)
  - Colitis [Recovered/Resolved]
  - Diarrhoea [Recovered/Resolved]
  - Proctitis [Recovered/Resolved]
